FAERS Safety Report 7468660-9 (Version None)
Quarter: 2011Q2

REPORT INFORMATION
  Report Type: 
  Country: None (occurrence: None)
  Receive Date: 20110510
  Receipt Date: 20110429
  Transmission Date: 20111010
  Serious: Yes (Hospitalization, Other)
  Sender: FDA-Public Use
  Company Number: US-BIOGENIDEC-2009BI011744

PATIENT
  Sex: Female
  Weight: 69 kg

DRUGS (2)
  1. AVONEX [Suspect]
     Indication: MULTIPLE SCLEROSIS
     Route: 030
     Dates: start: 19990301, end: 20030101
  2. AVONEX [Suspect]
     Route: 030
     Dates: start: 20030101

REACTIONS (26)
  - HEADACHE [None]
  - INJECTION SITE PRURITUS [None]
  - INJECTION SITE PAIN [None]
  - DEEP VEIN THROMBOSIS [None]
  - WEIGHT DECREASED [None]
  - PULMONARY THROMBOSIS [None]
  - NERVOUS SYSTEM DISORDER [None]
  - CEREBROVASCULAR ACCIDENT [None]
  - CHILLS [None]
  - LUNG NEOPLASM MALIGNANT [None]
  - JOINT DISLOCATION [None]
  - PRODUCTIVE COUGH [None]
  - FALL [None]
  - INJECTION SITE SWELLING [None]
  - ARTHRITIS [None]
  - CEREBRAL HAEMORRHAGE [None]
  - EMBOLISM [None]
  - ABASIA [None]
  - LYME DISEASE [None]
  - ASTHENIA [None]
  - INFLUENZA LIKE ILLNESS [None]
  - LUNG ADENOCARCINOMA METASTATIC [None]
  - BUNION [None]
  - INJECTION SITE HAEMATOMA [None]
  - INJECTION SITE ERYTHEMA [None]
  - HEPATIC ENZYME INCREASED [None]
